FAERS Safety Report 17994198 (Version 1)
Quarter: 2020Q3

REPORT INFORMATION
  Report Type: Spontaneous
  Country: US (occurrence: US)
  Receive Date: 20200707
  Receipt Date: 20200707
  Transmission Date: 20201103
  Serious: Yes (Hospitalization)
  Sender: FDA-Public Use
  Company Number: None

PATIENT
  Age: 75 Year
  Sex: Female

DRUGS (14)
  1. MYCOPHENOLATE, 500MG [Suspect]
     Active Substance: MYCOPHENOLIC ACID
     Indication: RENAL TRANSPLANT
     Route: 048
     Dates: start: 20130812
  2. ASPIRIN. [Concomitant]
     Active Substance: ASPIRIN
  3. LYRICA [Concomitant]
     Active Substance: PREGABALIN
  4. NOVOLOG [Concomitant]
     Active Substance: INSULIN ASPART
  5. VALCYLE [Concomitant]
  6. ZOLCRIT [Concomitant]
  7. FERROUS SULF [Concomitant]
     Active Substance: FERROUS SULFATE
  8. MIRAPAX [Concomitant]
  9. CARB/LEVO [Concomitant]
     Active Substance: CARBIDOPA\LEVODOPA
  10. FUROSEMIDE. [Concomitant]
     Active Substance: FUROSEMIDE
  11. LEVOTHYROXINE. [Concomitant]
     Active Substance: LEVOTHYROXINE
  12. MELOCLOPRAM [Concomitant]
  13. VITAMIN D [Concomitant]
     Active Substance: VITAMIN D NOS
  14. TACROLIMUS  1MG [Suspect]
     Active Substance: TACROLIMUS
     Indication: RENAL TRANSPLANT
     Route: 048
     Dates: start: 20130812

REACTIONS (1)
  - Hospitalisation [None]

NARRATIVE: CASE EVENT DATE: 20200518
